FAERS Safety Report 20803460 (Version 1)
Quarter: 2022Q2

REPORT INFORMATION
  Report Type: Report from Study
  Country: US (occurrence: US)
  Receive Date: 20220509
  Receipt Date: 20220509
  Transmission Date: 20220720
  Serious: Yes (Other)
  Sender: FDA-Public Use
  Company Number: US-NOVARTISPH-NVSC2022US105826

PATIENT
  Sex: Male
  Weight: 225 kg

DRUGS (1)
  1. ENTRESTO [Suspect]
     Active Substance: SACUBITRIL\VALSARTAN
     Indication: Cardiac failure chronic
     Dosage: 1 DOSAGE FORM, BID
     Route: 048
     Dates: start: 201803

REACTIONS (3)
  - Dyspnoea [Not Recovered/Not Resolved]
  - Renal disorder [Recovering/Resolving]
  - Memory impairment [Unknown]
